FAERS Safety Report 19895076 (Version 1)
Quarter: 2021Q3

REPORT INFORMATION
  Report Type: Spontaneous
  Country: UG (occurrence: UG)
  Receive Date: 20210929
  Receipt Date: 20210929
  Transmission Date: 20211014
  Serious: Yes (Other)
  Sender: FDA-Public Use
  Company Number: UG-STRIDES ARCOLAB LIMITED-2021SP028128

PATIENT
  Age: 17 Year
  Sex: Female

DRUGS (4)
  1. TENOFOVIR DISOPROXIL FUMARATE. [Suspect]
     Active Substance: TENOFOVIR DISOPROXIL FUMARATE
     Indication: HIV INFECTION
     Dosage: 300 MILLIGRAM, PER DAY (SINGLE COURSE)
     Route: 065
     Dates: start: 20170228
  2. TIVICAY [Suspect]
     Active Substance: DOLUTEGRAVIR SODIUM
     Indication: HIV INFECTION
     Dosage: 50 MILLIGRAM, PER DAY, (SINGLE COURSE)
     Route: 065
     Dates: start: 20180424
  3. COTRIMOXAZOLE [Suspect]
     Active Substance: SULFAMETHOXAZOLE\TRIMETHOPRIM
     Indication: PRODUCT USED FOR UNKNOWN INDICATION
     Dosage: UNK, FROM PRIOR TO CONCEPTION AT FIRST TRIMESTER
     Route: 065
  4. LAMIVUDINE. [Suspect]
     Active Substance: LAMIVUDINE
     Indication: HIV INFECTION
     Dosage: 300 MILLIGRAM, PER DAY (SINGLE COURSE)
     Route: 065
     Dates: start: 20170228

REACTIONS (2)
  - Maternal exposure during pregnancy [Unknown]
  - Abortion spontaneous [Unknown]
